FAERS Safety Report 10222971 (Version 2)
Quarter: 2015Q2

REPORT INFORMATION
  Report Type: Spontaneous
  Country: US (occurrence: US)
  Receive Date: 20140607
  Receipt Date: 20150617
  Transmission Date: 20150821
  Serious: Yes (Other)
  Sender: FDA-Public Use
  Company Number: CHPA2014US007704

PATIENT
  Age: 63 Year
  Sex: Female

DRUGS (4)
  1. PREVACID [Suspect]
     Active Substance: LANSOPRAZOLE
     Indication: GASTROOESOPHAGEAL REFLUX DISEASE
     Dosage: 15 MG, QD
     Route: 048
     Dates: start: 2013
  2. PREVACID [Suspect]
     Active Substance: LANSOPRAZOLE
     Indication: OFF LABEL USE
     Dosage: 30 MG, UNK
     Route: 048
  3. PREVACID [Suspect]
     Active Substance: LANSOPRAZOLE
     Dosage: 1 A DAY, UP TO 2 A DAY
     Route: 048
     Dates: start: 201405
  4. PREDNISONE. [Concomitant]
     Active Substance: PREDNISONE
     Dosage: UNK

REACTIONS (5)
  - Cerebellar ataxia [Not Recovered/Not Resolved]
  - Incorrect drug administration duration [Unknown]
  - Drug ineffective for unapproved indication [Unknown]
  - Cough [Unknown]
  - Thyroid cancer [Not Recovered/Not Resolved]

NARRATIVE: CASE EVENT DATE: 2013
